FAERS Safety Report 9053423 (Version 1)
Quarter: 2013Q1

REPORT INFORMATION
  Report Type: Spontaneous
  Country: IT (occurrence: IT)
  Receive Date: 20130208
  Receipt Date: 20130208
  Transmission Date: 20140127
  Serious: Yes (Death)
  Sender: FDA-Public Use
  Company Number: IT-CELGENEUS-083-20785-13014632

PATIENT
  Age: 81 None
  Sex: Female

DRUGS (3)
  1. THALIDOMIDE [Suspect]
     Indication: PLASMA CELL MYELOMA
     Dosage: 50 MILLIGRAM
     Route: 048
     Dates: start: 20121128, end: 20121225
  2. MELPHALAN [Concomitant]
     Indication: PLASMA CELL MYELOMA
     Route: 065
     Dates: start: 201211
  3. PREDNISONE [Concomitant]
     Indication: PLASMA CELL MYELOMA
     Route: 065
     Dates: start: 201211

REACTIONS (1)
  - Pneumonia [Fatal]
